FAERS Safety Report 8277311-5 (Version None)
Quarter: 2012Q2

REPORT INFORMATION
  Report Type: 
  Country: None (occurrence: None)
  Receive Date: 20120412
  Receipt Date: 20120402
  Transmission Date: 20120825
  Serious: Yes (Death, Hospitalization)
  Sender: FDA-Public Use
  Company Number: FR-GLAXOSMITHKLINE-B0787863A

PATIENT
  Sex: Male
  Weight: 120 kg

DRUGS (2)
  1. ARIXTRA [Suspect]
     Indication: PRODUCT USED FOR UNKNOWN INDICATION
     Route: 058
     Dates: start: 20111101, end: 20111118
  2. DIURETICS [Concomitant]

REACTIONS (2)
  - CEREBRAL HAEMORRHAGE [None]
  - INTRAVENTRICULAR HAEMORRHAGE [None]
